FAERS Safety Report 5464200-4 (Version None)
Quarter: 2007Q3

REPORT INFORMATION
  Report Type: 
  Country: None (occurrence: None)
  Receive Date: 20070921
  Receipt Date: 20070913
  Transmission Date: 20080115
  Serious: Yes (Other)
  Sender: FDA-Public Use
  Company Number: UA-AVENTIS-200715884US

PATIENT
  Age: 73 Year
  Sex: Female

DRUGS (9)
  1. LANTUS [Suspect]
     Dates: start: 20050101, end: 20070601
  2. LANTUS [Suspect]
     Dosage: DOSE: 100 U VIA TWO SEPARATE 50 UNIT DOSES
     Dates: start: 20070601
  3. OPTICLIK (INSULIN INJECTION PEN) [Suspect]
     Dates: start: 20050101
  4. HYZAAR [Concomitant]
     Dosage: DOSE: UNK
  5. NORVASC [Concomitant]
     Dosage: DOSE: UNK
  6. SYNTHROID [Concomitant]
     Dosage: DOSE: UNK
  7. TRANXENE [Concomitant]
     Dosage: DOSE: UNK
  8. CELEBREX [Concomitant]
     Dosage: DOSE: UNK
  9. BYETTA [Concomitant]
     Dosage: DOSE: UNK
     Dates: end: 20070601

REACTIONS (4)
  - GRANULOMA ANNULARE [None]
  - INJECTION SITE IRRITATION [None]
  - RASH PAPULAR [None]
  - SARCOIDOSIS [None]
